FAERS Safety Report 4907147-1 (Version None)
Quarter: 2006Q1

REPORT INFORMATION
  Report Type: 
  Country: None (occurrence: None)
  Receive Date: 20060206
  Receipt Date: 20060123
  Transmission Date: 20060701
  Serious: Yes (Other)
  Sender: FDA-Public Use
  Company Number: 2006012883

PATIENT
  Age: 59 Year
  Sex: Female

DRUGS (4)
  1. EPIRUBICIN [Suspect]
     Indication: UTERINE CANCER
     Dosage: 50 MG/M2, INTRAVENOUS
     Route: 042
     Dates: start: 20060113
  2. TAXOL [Suspect]
     Indication: UTERINE CANCER
     Dosage: 150 MG/M2, INTRAVENOUS
     Route: 042
     Dates: start: 20060113
  3. PARAPLATIN [Suspect]
     Indication: UTERINE CANCER
     Dosage: 400 MG/BODY, INTRAVENOUS
     Route: 042
     Dates: start: 20060113
  4. DECADRON [Suspect]
     Indication: ILL-DEFINED DISORDER
     Dosage: INTRAVENOUS
     Route: 042

REACTIONS (3)
  - ALKALOSIS [None]
  - FALL [None]
  - LOSS OF CONSCIOUSNESS [None]
